FAERS Safety Report 13536065 (Version 1)
Quarter: 2017Q2

REPORT INFORMATION
  Report Type: Report from Study
  Country: ES (occurrence: ES)
  Receive Date: 20170511
  Receipt Date: 20170511
  Transmission Date: 20170830
  Serious: Yes (Other)
  Sender: FDA-Public Use
  Company Number: ES-TEVA-766729ROM

PATIENT
  Age: 51 Year
  Sex: Female

DRUGS (2)
  1. DYPIRONE [Suspect]
     Active Substance: METAMIZOLE
     Route: 065
  2. NAPROXEN. [Suspect]
     Active Substance: NAPROXEN
     Route: 065

REACTIONS (1)
  - Anaphylactic shock [Unknown]
